FAERS Safety Report 8261546-1 (Version None)
Quarter: 2012Q2

REPORT INFORMATION
  Report Type: 
  Country: None (occurrence: None)
  Receive Date: 20120405
  Receipt Date: 20120327
  Transmission Date: 20120825
  Serious: Yes (Hospitalization)
  Sender: FDA-Public Use
  Company Number: CA-ELI_LILLY_AND_COMPANY-CA201203008452

PATIENT
  Age: 78 Year
  Sex: Female

DRUGS (9)
  1. ADALAT [Concomitant]
  2. AVAPRO [Concomitant]
     Dosage: 150 MG, UNK
  3. MULTI-VITAMIN [Concomitant]
  4. VITAMIN D [Concomitant]
  5. FORTEO [Suspect]
     Indication: OSTEOPOROSIS
     Dosage: 20 UG, QD
     Dates: start: 20110704
  6. FORTEO [Suspect]
     Dosage: 20 UG, QD
     Dates: start: 20120121
  7. CALCIUM CARBONATE [Concomitant]
  8. LAXATIVES [Concomitant]
  9. ESCITALOPRAM [Concomitant]
     Dosage: 10 MG, QD

REACTIONS (3)
  - COLONIC POLYP [None]
  - DEPRESSION [None]
  - DRUG DOSE OMISSION [None]
